FAERS Safety Report 5688639-7 (Version None)
Quarter: 2008Q1

REPORT INFORMATION
  Report Type: 
  Country: None (occurrence: None)
  Receive Date: 20080328
  Receipt Date: 20080328
  Transmission Date: 20080703
  Serious: Yes (Other)
  Sender: FDA-Public Use
  Company Number: None

PATIENT
  Sex: Male
  Weight: 68.0396 kg

DRUGS (3)
  1. SINGULAIR [Suspect]
     Indication: MULTIPLE ALLERGIES
     Dosage: EACH TABLET 10.2 MG PO
     Route: 048
     Dates: start: 20061201, end: 20080301
  2. SINGULAIR [Suspect]
     Indication: NASAL DISORDER
     Dosage: EACH TABLET 10.2 MG PO
     Route: 048
     Dates: start: 20061201, end: 20080301
  3. SINGULAIR [Suspect]
     Indication: NASOPHARYNGITIS
     Dosage: EACH TABLET 10.2 MG PO
     Route: 048
     Dates: start: 20061201, end: 20080301

REACTIONS (4)
  - ABNORMAL BEHAVIOUR [None]
  - DEPRESSION [None]
  - MOOD SWINGS [None]
  - PHARMACEUTICAL PRODUCT COMPLAINT [None]
